FAERS Safety Report 7538444-1 (Version None)
Quarter: 2011Q2

REPORT INFORMATION
  Report Type: 
  Country: None (occurrence: None)
  Receive Date: 20110609
  Receipt Date: 20110428
  Transmission Date: 20111010
  Serious: Yes (Death, Other)
  Sender: FDA-Public Use
  Company Number: US-BAXTER-2011BH013595

PATIENT

DRUGS (3)
  1. EPINEPHRINE [Suspect]
     Indication: OESOPHAGEAL DILATION PROCEDURE
     Route: 065
  2. BREVIBLOC [Suspect]
     Indication: OESOPHAGEAL DILATION PROCEDURE
     Route: 065
  3. BREVIBLOC [Suspect]
     Indication: OFF LABEL USE
     Route: 065

REACTIONS (2)
  - DEATH [None]
  - ATRIOVENTRICULAR BLOCK [None]
